FAERS Safety Report 10811997 (Version 1)
Quarter: 2015Q1

REPORT INFORMATION
  Report Type: Spontaneous
  Country: US (occurrence: None)
  Receive Date: 20150213
  Receipt Date: 20150213
  Transmission Date: 20150721
  Serious: Yes (Life-Threatening, Hospitalization)
  Sender: FDA-Public Use
  Company Number: None

PATIENT
  Age: 59 Year
  Sex: Male
  Weight: 135 kg

DRUGS (4)
  1. LISINOPRIL-HCTZ 10-12.5MG TABLET [Suspect]
     Active Substance: HYDROCHLOROTHIAZIDE\LISINOPRIL
     Indication: HYPERTENSION
     Dosage: 1 PILL QD ORAL
     Route: 048
     Dates: start: 20150128, end: 20150128
  2. ASPIRIN. [Concomitant]
     Active Substance: ASPIRIN
  3. PSYLLIUM [Concomitant]
     Active Substance: PLANTAGO SEED
  4. LISINOPRIL-HCTZ [Concomitant]
     Active Substance: HYDROCHLOROTHIAZIDE\LISINOPRIL

REACTIONS (7)
  - Post procedural haemorrhage [None]
  - Obstructive airways disorder [None]
  - Throat tightness [None]
  - Angioedema [None]
  - Dysphonia [None]
  - Thrombosis [None]
  - Pharyngeal oedema [None]

NARRATIVE: CASE EVENT DATE: 20150128
